FAERS Safety Report 4757090-6 (Version None)
Quarter: 2005Q3

REPORT INFORMATION
  Report Type: 
  Country: None (occurrence: None)
  Receive Date: 20050829
  Receipt Date: 20050815
  Transmission Date: 20060218
  Serious: Yes (Hospitalization)
  Sender: FDA-Public Use
  Company Number: 2005US001121

PATIENT
  Age: 58 Year
  Sex: Female

DRUGS (7)
  1. PROGRAF [Suspect]
     Indication: PROPHYLAXIS AGAINST TRANSPLANT REJECTION
     Dosage: 3.00 MG, BID, ORAL
     Route: 048
  2. MYCOPHENOLATE MOFETIL (MYCOPHENOLATE MOFETIL) [Suspect]
     Indication: PROPHYLAXIS AGAINST TRANSPLANT REJECTION
     Dosage: 1000.00 MG, BID, ORAL
     Route: 048
  3. PREDNISONE [Suspect]
     Indication: PROPHYLAXIS AGAINST TRANSPLANT REJECTION
     Dosage: 10.00 MG, ORAL
     Route: 048
  4. NORVASC [Concomitant]
  5. METOPROLOL TARTRATE [Concomitant]
  6. K-PHOS NEUTRAL (SODIUM PHOSPHATE DIBASIC, POTASSIUM PHOSPHATE MONOBASI [Concomitant]
  7. PROTONIX [Concomitant]

REACTIONS (1)
  - BACTERIAL PYELONEPHRITIS [None]
